FAERS Safety Report 25247474 (Version 1)
Quarter: 2025Q2

REPORT INFORMATION
  Report Type: Spontaneous
  Country: KR (occurrence: KR)
  Receive Date: 20250428
  Receipt Date: 20250428
  Transmission Date: 20250716
  Serious: Yes (Other)
  Sender: PFIZER
  Company Number: KR-PFIZER INC-202500086279

PATIENT
  Age: 11 Year
  Sex: Male

DRUGS (3)
  1. VINCRISTINE SULFATE [Suspect]
     Active Substance: VINCRISTINE SULFATE
     Indication: Brain neoplasm
     Dosage: 1.7 MG, 1X/DAY
     Dates: start: 20240424, end: 20240424
  2. CISPLATIN [Suspect]
     Active Substance: CISPLATIN
     Indication: Brain neoplasm
     Dosage: 83 MG, 1X/DAY
     Dates: start: 20240424, end: 20240424
  3. CYCLOPHOSPHAMIDE [Suspect]
     Active Substance: CYCLOPHOSPHAMIDE
     Indication: Brain neoplasm
     Dosage: 1120 MG, 1X/DAY
     Dates: start: 20240425, end: 20240425

REACTIONS (4)
  - Leukopenia [Recovered/Resolved]
  - Thrombocytopenia [Recovered/Resolved]
  - Anaemia [Recovered/Resolved]
  - Febrile neutropenia [Recovered/Resolved]

NARRATIVE: CASE EVENT DATE: 20240502
